FAERS Safety Report 6123061-0 (Version None)
Quarter: 2009Q1

REPORT INFORMATION
  Report Type: 
  Country: None (occurrence: None)
  Receive Date: 20090318
  Receipt Date: 20090304
  Transmission Date: 20090719
  Serious: Yes (Other)
  Sender: FDA-Public Use
  Company Number: GB-PFIZER INC-2009168400

PATIENT

DRUGS (4)
  1. DEPO-PROVERA [Suspect]
     Indication: CONTRACEPTION
     Dosage: UNK
     Route: 030
     Dates: end: 20081101
  2. ZOPICLONE [Concomitant]
  3. CITALOPRAM [Concomitant]
     Dosage: ONCE DAILY
  4. SIMVASTATIN [Concomitant]
     Dosage: ONCE DAILY

REACTIONS (2)
  - CHEILITIS GRANULOMATOSA [None]
  - CONDITION AGGRAVATED [None]
